FAERS Safety Report 15574480 (Version 1)
Quarter: 2018Q4

REPORT INFORMATION
  Report Type: Spontaneous
  Country: US (occurrence: US)
  Receive Date: 20181101
  Receipt Date: 20181101
  Transmission Date: 20190205
  Serious: No
  Sender: FDA-Public Use
  Company Number: PHHY2018US142201

PATIENT
  Age: 71 Year
  Sex: Male

DRUGS (1)
  1. TASIGNA [Suspect]
     Active Substance: NILOTINIB
     Indication: CHRONIC MYELOID LEUKAEMIA
     Dosage: 300 MG/KG, BID (EVERY 12 HOURS)
     Route: 048
     Dates: start: 20180401, end: 20180705

REACTIONS (2)
  - Heart rate irregular [Unknown]
  - Tachycardia [Unknown]
